FAERS Safety Report 17939847 (Version 3)
Quarter: 2020Q3

REPORT INFORMATION
  Report Type: Report from Study
  Country: CA (occurrence: CA)
  Receive Date: 20200625
  Receipt Date: 20200729
  Transmission Date: 20201103
  Serious: Yes (Other)
  Sender: FDA-Public Use
  Company Number: CA-BRISTOL-MYERS SQUIBB COMPANY-BMS-2020-048710

PATIENT
  Sex: Female

DRUGS (2)
  1. ABATACEPT [Suspect]
     Active Substance: ABATACEPT
     Indication: RHEUMATOID ARTHRITIS
     Dosage: 750 MILLIGRAM, Q4WK
     Route: 042
  2. CLAVULIN [AMOXICILLIN TRIHYDRATE;CLAVULANATE POTASSIUM] [Suspect]
     Active Substance: AMOXICILLIN\CLAVULANIC ACID
     Indication: GENITOURINARY TRACT INFECTION
     Route: 065

REACTIONS (5)
  - Atrophic vulvovaginitis [Recovered/Resolved]
  - Arthralgia [Unknown]
  - Anal stenosis [Recovered/Resolved]
  - Diarrhoea [Recovered/Resolved]
  - Genitourinary tract infection [Recovered/Resolved]
